FAERS Safety Report 23510505 (Version 1)
Quarter: 2024Q1

REPORT INFORMATION
  Report Type: Spontaneous
  Country: CN (occurrence: CN)
  Receive Date: 20240211
  Receipt Date: 20240211
  Transmission Date: 20240409
  Serious: Yes (Hospitalization, Other)
  Sender: FDA-Public Use
  Company Number: CN-AstraZeneca-2024-131662

PATIENT

DRUGS (12)
  1. GOSERELIN [Suspect]
     Active Substance: GOSERELIN
     Indication: Neoplasm malignant
     Dosage: 3.6 MILLIGRAM, EVERY 4 WEEKS
     Route: 058
     Dates: start: 20231016, end: 20231123
  2. GOSERELIN [Suspect]
     Active Substance: GOSERELIN
     Indication: Invasive ductal breast carcinoma
  3. GOSERELIN [Suspect]
     Active Substance: GOSERELIN
     Indication: Breast cancer
  4. ZOLADEX [Suspect]
     Active Substance: GOSERELIN ACETATE
     Indication: Neoplasm malignant
     Dosage: UNK
     Route: 065
  5. ZOLADEX [Suspect]
     Active Substance: GOSERELIN ACETATE
     Indication: Invasive ductal breast carcinoma
  6. ZOLADEX [Suspect]
     Active Substance: GOSERELIN ACETATE
     Indication: Breast cancer
  7. FULVESTRANT [Suspect]
     Active Substance: FULVESTRANT
     Indication: Neoplasm malignant
     Dosage: 0.5 GRAM, EVERY 4 WEEKS
     Route: 030
     Dates: start: 20231016, end: 20231123
  8. FULVESTRANT [Suspect]
     Active Substance: FULVESTRANT
     Indication: Invasive ductal breast carcinoma
  9. FULVESTRANT [Suspect]
     Active Substance: FULVESTRANT
     Indication: Breast cancer
  10. ABEMACICLIB MESYLATE [Suspect]
     Active Substance: ABEMACICLIB MESYLATE
     Indication: Neoplasm malignant
     Dosage: 150 MILLIGRAM
     Route: 048
     Dates: start: 20231016, end: 20231123
  11. ABEMACICLIB MESYLATE [Suspect]
     Active Substance: ABEMACICLIB MESYLATE
     Indication: Invasive ductal breast carcinoma
     Route: 048
     Dates: start: 20231016, end: 20231123
  12. ABEMACICLIB MESYLATE [Suspect]
     Active Substance: ABEMACICLIB MESYLATE
     Indication: Breast cancer
     Route: 048
     Dates: start: 20231016, end: 20231123

REACTIONS (1)
  - Myelosuppression [Unknown]

NARRATIVE: CASE EVENT DATE: 20231123
